FAERS Safety Report 9458354 (Version 2)
Quarter: 2013Q3

REPORT INFORMATION
  Report Type: Spontaneous
  Country: BR (occurrence: BR)
  Receive Date: 20130814
  Receipt Date: 20130820
  Transmission Date: 20140515
  Serious: Yes (Death)
  Sender: FDA-Public Use
  Company Number: BR-PFIZER INC-2013232787

PATIENT
  Sex: Female
  Weight: 58 kg

DRUGS (2)
  1. LYRICA [Suspect]
     Indication: TUMOUR PAIN
     Dosage: 150 MG, UNK
  2. METHADONE [Concomitant]
     Indication: PAIN
     Dosage: 2 TABLETS (10 MG), EVERY 8 HOURS

REACTIONS (3)
  - Off label use [Fatal]
  - Emphysema [Fatal]
  - Sepsis [Fatal]
